FAERS Safety Report 9830020 (Version 2)
Quarter: 2014Q1

REPORT INFORMATION
  Report Type: Spontaneous
  Country: US (occurrence: US)
  Receive Date: 20140120
  Receipt Date: 20140120
  Transmission Date: 20141002
  Serious: Yes (Hospitalization, Other)
  Sender: FDA-Public Use
  Company Number: US-BEH-2012033866

PATIENT
  Age: 62 Year
  Sex: Female
  Weight: 54 kg

DRUGS (39)
  1. PRIVIGEN [Suspect]
     Dosage: 20 GM  OVER 4 TO 6 HOURS
     Route: 042
  2. PRIVIGEN [Suspect]
     Dosage: 20 GM  OVER 4 TO 6 HOURS
     Route: 042
  3. PRIVIGEN [Suspect]
     Indication: IMMUNODEFICIENCY COMMON VARIABLE
     Dosage: OVER 4-6 HOURS
     Route: 042
     Dates: start: 20130102, end: 20130102
  4. PRIVIGEN [Suspect]
     Dosage: 20 GM VIAL;OVER 4-6 HOURS
     Route: 042
     Dates: start: 20130705, end: 20130705
  5. PRIVIGEN [Suspect]
     Dosage: 20 GM VIAL; OVER 4-6 HOURS PER MANUFACTURER GUIDELINES
     Route: 042
     Dates: start: 20131003, end: 20131003
  6. PRIVIGEN [Suspect]
     Dosage: OVER 4-6 HOURS
     Route: 042
     Dates: start: 20131228, end: 20131228
  7. ACETAMINOPHEN [Concomitant]
  8. DIPHENHYDRAMINE [Concomitant]
     Indication: PREMEDICATION
  9. HEPARIN [Concomitant]
  10. SODIUM CHLORIDE [Concomitant]
  11. EPIPEN [Concomitant]
     Indication: PREMEDICATION
  12. LEVAQUIN [Concomitant]
  13. KLONOPIN [Concomitant]
  14. DULERA [Concomitant]
  15. TRAMADOL [Concomitant]
  16. LORATAB [Concomitant]
  17. ALVESCO [Concomitant]
  18. DEXILANT [Concomitant]
  19. MULTIVITAMIN [Concomitant]
  20. VITAMIN D3 [Concomitant]
  21. SINGULAIR [Concomitant]
  22. LIPITOR [Concomitant]
  23. BIAXIN [Concomitant]
  24. ACIPHEN [Concomitant]
  25. FOLIC ACID [Concomitant]
  26. ZETIA [Concomitant]
  27. EFFEXOR [Concomitant]
  28. ASPIRIN [Concomitant]
  29. ADVAIR [Concomitant]
  30. GRALISE [Concomitant]
  31. FLAGYL [Concomitant]
  32. CIPRO [Concomitant]
  33. VALTREX [Concomitant]
  34. LORTAB [Concomitant]
  35. ACIPHEX [Concomitant]
  36. BYSTOLIC [Concomitant]
  37. CITRUS BIOFLAVONOIDS [Concomitant]
  38. ZYRTEC [Concomitant]
  39. BACLOFEN [Concomitant]

REACTIONS (10)
  - Staphylococcal infection [Unknown]
  - Headache [Recovered/Resolved]
  - Chest pain [Recovered/Resolved]
  - Headache [Recovered/Resolved]
  - Incorrect drug administration rate [Recovered/Resolved]
  - Sinusitis [Unknown]
  - Eye infection [Unknown]
  - Ear infection [Unknown]
  - Rhinitis [Unknown]
  - Pharyngitis [Unknown]
